FAERS Safety Report 13721216 (Version 1)
Quarter: 2017Q3

REPORT INFORMATION
  Report Type: Spontaneous
  Country: US (occurrence: US)
  Receive Date: 20170705
  Receipt Date: 20170705
  Transmission Date: 20171127
  Serious: No
  Sender: FDA-Public Use
  Company Number: None

PATIENT
  Age: 33 Year
  Sex: Female
  Weight: 76.5 kg

DRUGS (2)
  1. CONTRAVE [Suspect]
     Active Substance: BUPROPION HYDROCHLORIDE\NALTREXONE HYDROCHLORIDE
     Indication: WEIGHT CONTROL
     Dosage: ?          OTHER STRENGTH:MG;QUANTITY:70 TABLET(S);?
     Route: 048
     Dates: start: 20170611, end: 20170629
  2. FLUTAMIDE. [Concomitant]
     Active Substance: FLUTAMIDE

REACTIONS (3)
  - Nausea [None]
  - Impaired work ability [None]
  - Dizziness [None]

NARRATIVE: CASE EVENT DATE: 20170625
